FAERS Safety Report 9388771 (Version 1)
Quarter: 2013Q3

REPORT INFORMATION
  Report Type: Spontaneous
  Country: GR (occurrence: GR)
  Receive Date: 20130708
  Receipt Date: 20130708
  Transmission Date: 20140515
  Serious: Yes (Other)
  Sender: FDA-Public Use
  Company Number: GR-VIIV HEALTHCARE LIMITED-B0906013A

PATIENT
  Sex: Male

DRUGS (2)
  1. COMBIVIR [Suspect]
     Indication: INFECTION
     Route: 065
     Dates: start: 20130624
  2. KALETRA [Concomitant]

REACTIONS (2)
  - Tongue abscess [Recovering/Resolving]
  - Nausea [Recovering/Resolving]
